FAERS Safety Report 4330927-0 (Version None)
Quarter: 2004Q1

REPORT INFORMATION
  Report Type: 
  Country: None (occurrence: None)
  Receive Date: 20040329
  Receipt Date: 20040318
  Transmission Date: 20041129
  Serious: Yes (Death)
  Sender: FDA-Public Use
  Company Number: US-JNJFOC-20040304539

PATIENT
  Age: 64 Year
  Sex: Male

DRUGS (1)
  1. DURAGESIC [Suspect]
     Indication: PAIN
     Dosage: 250 UG, 1 IN 72 HOUR, TRANSDERMAL
     Route: 062
     Dates: start: 20030301

REACTIONS (1)
  - DEATH [None]
